FAERS Safety Report 14499214 (Version 1)
Quarter: 2018Q1

REPORT INFORMATION
  Report Type: Spontaneous
  Country: US (occurrence: US)
  Receive Date: 20180207
  Receipt Date: 20180207
  Transmission Date: 20180509
  Serious: No
  Sender: FDA-Public Use
  Company Number: US-JAZZ-2017-US-006148

PATIENT
  Age: 45 Year
  Sex: Female

DRUGS (25)
  1. BUPIVACAINE. [Suspect]
     Active Substance: BUPIVACAINE
     Dosage: 0.25 MG, QH
     Route: 037
     Dates: start: 20140301
  2. BUPIVACAINE. [Suspect]
     Active Substance: BUPIVACAINE
     Dosage: 0.25 MG, QH
     Dates: start: 20160218
  3. PRIALT [Suspect]
     Active Substance: ZICONOTIDE ACETATE
     Dosage: 0.4 ?G,QH
     Route: 048
     Dates: start: 20151229
  4. BUPIVACAINE. [Suspect]
     Active Substance: BUPIVACAINE
     Dosage: 0.25 MG,QH
     Dates: start: 20151229
  5. PRIALT [Suspect]
     Active Substance: ZICONOTIDE ACETATE
     Dosage: 0.4 ?G, QH
     Dates: start: 20140301
  6. DILAUDID [Suspect]
     Active Substance: HYDROMORPHONE HYDROCHLORIDE
     Dosage: 0.75 MG,QH
     Dates: start: 20141222
  7. BUPIVACAINE. [Suspect]
     Active Substance: BUPIVACAINE
     Dosage: 0.25 MG, QH
     Route: 037
     Dates: start: 20160415
  8. PRIALT [Suspect]
     Active Substance: ZICONOTIDE ACETATE
     Dosage: 0.4 ?G, QH
     Route: 037
     Dates: start: 20140222
  9. DILAUDID [Suspect]
     Active Substance: HYDROMORPHONE HYDROCHLORIDE
     Dosage: 0.75 MG, QH
     Dates: start: 20140301
  10. MEDROL [Concomitant]
     Active Substance: METHYLPREDNISOLONE
  11. PRIALT [Suspect]
     Active Substance: ZICONOTIDE ACETATE
     Dosage: 0.4 ?G, QH
     Route: 037
     Dates: start: 20140415
  12. DILAUDID [Suspect]
     Active Substance: HYDROMORPHONE HYDROCHLORIDE
     Indication: PRODUCT USED FOR UNKNOWN INDICATION
     Dosage: 0.75 MG, QH
     Route: 037
     Dates: start: 20140221
  13. DILAUDID [Suspect]
     Active Substance: HYDROMORPHONE HYDROCHLORIDE
     Dosage: 0.75 MG, QH
     Route: 037
     Dates: start: 20140222
  14. DILAUDID [Suspect]
     Active Substance: HYDROMORPHONE HYDROCHLORIDE
     Dosage: 0.75 MG,QH
     Route: 037
     Dates: start: 20141110
  15. BUPIVACAINE. [Suspect]
     Active Substance: BUPIVACAINE
     Dosage: 0.25 MG, QH
     Route: 037
     Dates: start: 20140222
  16. BUPIVACAINE. [Suspect]
     Active Substance: BUPIVACAINE
     Dosage: 0.25 MG,QH
     Dates: start: 20141110
  17. PRIALT [Suspect]
     Active Substance: ZICONOTIDE ACETATE
     Dosage: 0.4 ?G, QH
     Route: 037
     Dates: start: 20141222
  18. PRIALT [Suspect]
     Active Substance: ZICONOTIDE ACETATE
     Dosage: 0.4 ?G, QH
     Route: 037
     Dates: start: 20160218
  19. DILAUDID [Suspect]
     Active Substance: HYDROMORPHONE HYDROCHLORIDE
     Dosage: 0.75 MG,QH
     Dates: start: 20151229
  20. DILAUDID [Suspect]
     Active Substance: HYDROMORPHONE HYDROCHLORIDE
     Dosage: 0.75 MG, QH
     Route: 037
     Dates: start: 20160218
  21. PRIALT [Suspect]
     Active Substance: ZICONOTIDE ACETATE
     Indication: PRODUCT USED FOR UNKNOWN INDICATION
     Dosage: 0.4?G, QH
     Route: 037
     Dates: start: 20140221
  22. PRIALT [Suspect]
     Active Substance: ZICONOTIDE ACETATE
     Dosage: 0.4 ?G,QH
     Route: 037
     Dates: start: 20141110
  23. DILAUDID [Suspect]
     Active Substance: HYDROMORPHONE HYDROCHLORIDE
     Dosage: 0.75 MG, QH
     Route: 037
     Dates: start: 20140415
  24. BUPIVACAINE. [Suspect]
     Active Substance: BUPIVACAINE
     Indication: PRODUCT USED FOR UNKNOWN INDICATION
     Dosage: 0.25 MG, QH
     Route: 037
     Dates: start: 20140221
  25. BUPIVACAINE. [Suspect]
     Active Substance: BUPIVACAINE
     Dosage: 0.25 MG, QH
     Route: 037
     Dates: start: 20141222

REACTIONS (7)
  - Constipation [Recovered/Resolved]
  - Drug ineffective [Unknown]
  - Withdrawal syndrome [Unknown]
  - Hypoaesthesia [Recovered/Resolved]
  - Pain in extremity [Recovered/Resolved]
  - Neuralgia [Recovered/Resolved]
  - Device issue [Unknown]

NARRATIVE: CASE EVENT DATE: 20140221
